FAERS Safety Report 12211035 (Version 1)
Quarter: 2016Q1

REPORT INFORMATION
  Report Type: Report from Study
  Country: None (occurrence: US)
  Receive Date: 20160325
  Receipt Date: 20160325
  Transmission Date: 20160526
  Serious: Yes (Death, Other)
  Sender: FDA-Public Use
  Company Number: US-EISAI MEDICAL RESEARCH-EC-2016-015042

PATIENT
  Sex: Male
  Weight: 68 kg

DRUGS (9)
  1. LISINOPRIL. [Concomitant]
     Active Substance: LISINOPRIL
  2. LENVIMA [Suspect]
     Active Substance: LENVATINIB
     Indication: THYROID CANCER
     Route: 048
     Dates: start: 20160227, end: 2016
  3. VICODIN [Concomitant]
     Active Substance: ACETAMINOPHEN\HYDROCODONE BITARTRATE
  4. OXYCONTIN [Concomitant]
     Active Substance: OXYCODONE HYDROCHLORIDE
  5. LENVIMA [Suspect]
     Active Substance: LENVATINIB
     Route: 048
     Dates: start: 2016, end: 2016
  6. SYNTHROID [Concomitant]
     Active Substance: LEVOTHYROXINE SODIUM
  7. ATIVAN [Concomitant]
     Active Substance: LORAZEPAM
  8. IBUPROFEN. [Concomitant]
     Active Substance: IBUPROFEN
  9. ZOFRAN [Concomitant]
     Active Substance: ONDANSETRON HYDROCHLORIDE

REACTIONS (9)
  - Cardiac arrest [Fatal]
  - Diarrhoea [Unknown]
  - Nausea [Unknown]
  - Vomiting [Not Recovered/Not Resolved]
  - Hiccups [Unknown]
  - Blood pressure increased [Unknown]
  - Hepatic failure [Not Recovered/Not Resolved]
  - Liver function test increased [Not Recovered/Not Resolved]
  - Pallor [Unknown]

NARRATIVE: CASE EVENT DATE: 2016
